FAERS Safety Report 4907872-2 (Version None)
Quarter: 2006Q1

REPORT INFORMATION
  Report Type: 
  Country: None (occurrence: None)
  Receive Date: 20060210
  Receipt Date: 20051228
  Transmission Date: 20060701
  Serious: Yes (Hospitalization, Other)
  Sender: FDA-Public Use
  Company Number: US-BRISTOL-MYERS SQUIBB COMPANY-13231949

PATIENT
  Age: 44 Year
  Sex: Female
  Weight: 68 kg

DRUGS (4)
  1. CISPLATIN [Suspect]
     Indication: ANAL CANCER METASTATIC
     Route: 042
     Dates: start: 20050321, end: 20050321
  2. MITOMYCIN [Suspect]
     Indication: ANAL CANCER
     Route: 042
     Dates: start: 20030808, end: 20030808
  3. FLUOROURACIL [Suspect]
     Indication: ANAL CANCER
     Route: 042
     Dates: start: 20030808, end: 20030808
  4. RADIATION THERAPY [Suspect]
     Indication: ANAL CANCER METASTATIC
     Dates: start: 20030601, end: 20030808

REACTIONS (3)
  - BONE MARROW FAILURE [None]
  - MYELODYSPLASTIC SYNDROME [None]
  - TREATMENT RELATED SECONDARY MALIGNANCY [None]
